FAERS Safety Report 10024889 (Version 1)
Quarter: 2014Q1

REPORT INFORMATION
  Report Type: Spontaneous
  Country: US (occurrence: US)
  Receive Date: 20140320
  Receipt Date: 20140320
  Transmission Date: 20141002
  Serious: No
  Sender: FDA-Public Use
  Company Number: US-009507513-1403USA009043

PATIENT
  Age: 81 Year
  Sex: Female

DRUGS (1)
  1. JANUVIA [Suspect]
     Indication: DIABETES MELLITUS
     Dosage: 50 MG, ONCE A DAY
     Route: 048
     Dates: start: 20140307

REACTIONS (2)
  - Wrong technique in drug usage process [Unknown]
  - Blood glucose decreased [Unknown]
